FAERS Safety Report 12103367 (Version 1)
Quarter: 2016Q1

REPORT INFORMATION
  Report Type: Report from Study
  Country: US (occurrence: US)
  Receive Date: 20160222
  Receipt Date: 20160222
  Transmission Date: 20160526
  Serious: Yes (Other)
  Sender: FDA-Public Use
  Company Number: US-ROCHE-1714297

PATIENT
  Age: 56 Year
  Sex: Female
  Weight: 118.04 kg

DRUGS (10)
  1. VALIUM [Concomitant]
     Active Substance: DIAZEPAM
     Dosage: DAILY
     Route: 065
  2. SAVELLA [Concomitant]
     Active Substance: MILNACIPRAN HYDROCHLORIDE
     Indication: PAIN
     Route: 048
  3. OXYCODONE [Concomitant]
     Active Substance: OXYCODONE
     Indication: PAIN
     Dosage: AS NEEDED
     Route: 048
  4. MYRBETRIQ [Concomitant]
     Active Substance: MIRABEGRON
     Indication: BLADDER SPASM
     Dosage: DAILY
     Route: 065
  5. MORPHINE SULFATE. [Concomitant]
     Active Substance: MORPHINE SULFATE
     Indication: PAIN
     Route: 048
  6. IMURAN [Concomitant]
     Active Substance: AZATHIOPRINE
     Dosage: CURRENTLY DISCONTINUED AS OF 8-FEB-2016
     Route: 065
  7. ACTEMRA [Suspect]
     Active Substance: TOCILIZUMAB
     Indication: PRODUCT USED FOR UNKNOWN INDICATION
     Route: 058
     Dates: start: 20160118, end: 20160208
  8. VISTARIL [Concomitant]
     Active Substance: HYDROXYZINE PAMOATE
     Dosage: 2 TABLETS AT NIGHT FOR SLEEPING
     Route: 065
  9. MARINOL (UNITED STATES) [Concomitant]
  10. LASIX [Concomitant]
     Active Substance: FUROSEMIDE
     Indication: RHEUMATOID ARTHRITIS
     Route: 048

REACTIONS (6)
  - Chest discomfort [Recovered/Resolved]
  - Stomatitis [Not Recovered/Not Resolved]
  - Pharyngeal erythema [Recovered/Resolved]
  - Cough [Recovered/Resolved]
  - Sinusitis [Recovered/Resolved]
  - Pharyngeal oedema [Recovered/Resolved]

NARRATIVE: CASE EVENT DATE: 20160208
